FAERS Safety Report 13770433 (Version 1)
Quarter: 2017Q3

REPORT INFORMATION
  Report Type: Other
  Country: GB (occurrence: CA)
  Receive Date: 20170719
  Receipt Date: 20170719
  Transmission Date: 20171127
  Serious: Yes (Other)
  Sender: FDA-Public Use
  Company Number: CA-INTERNATIONAL MEDICATION SYSTEMS, LIMITED-2023511

PATIENT
  Sex: Female
  Weight: 10 kg

DRUGS (1)
  1. SODIUM HYDROGEN CARBONATE [Suspect]
     Active Substance: SODIUM BICARBONATE
     Indication: CARDIAC ARREST

REACTIONS (3)
  - Blood electrolytes abnormal [Recovering/Resolving]
  - Blood gases abnormal [Recovering/Resolving]
  - Accidental overdose [Recovering/Resolving]
